FAERS Safety Report 21252990 (Version 3)
Quarter: 2022Q3

REPORT INFORMATION
  Report Type: Spontaneous
  Country: US (occurrence: US)
  Receive Date: 20220825
  Receipt Date: 20220922
  Transmission Date: 20221027
  Serious: Yes (Other)
  Sender: FDA-Public Use
  Company Number: US-BAYER-2022A114817

PATIENT
  Age: 14 Year
  Sex: Male

DRUGS (3)
  1. KOGENATE FS [Suspect]
     Active Substance: ANTIHEMOPHILIC FACTOR, HUMAN RECOMBINANT
     Dosage: 2500 IU, UNK (+/-10%)
  2. KOGENATE FS [Suspect]
     Active Substance: ANTIHEMOPHILIC FACTOR, HUMAN RECOMBINANT
     Dosage: 2 DF, ONCE FOR SURFACE BLEEDING AND SWELLING
     Dates: start: 202208, end: 202208
  3. KOGENATE FS [Suspect]
     Active Substance: ANTIHEMOPHILIC FACTOR, HUMAN RECOMBINANT
     Dosage: 1 DF, FOR THE RED MARK ON BACK

REACTIONS (4)
  - Traumatic haemorrhage [None]
  - Swelling [None]
  - Fall [None]
  - Rash macular [None]

NARRATIVE: CASE EVENT DATE: 20220814
